FAERS Safety Report 14110342 (Version 14)
Quarter: 2019Q1

REPORT INFORMATION
  Report Type: Spontaneous
  Country: US (occurrence: US)
  Receive Date: 20171020
  Receipt Date: 20190109
  Transmission Date: 20190417
  Serious: Yes (Other)
  Sender: FDA-Public Use
  Company Number: US-PFIZER INC-2017448870

PATIENT
  Age: 77 Year
  Sex: Female

DRUGS (2)
  1. IBRANCE [Suspect]
     Active Substance: PALBOCICLIB
     Indication: BREAST CANCER
     Dosage: 125 MG, CYCLIC (ONCE A DAY FOR 21 DAYS)
     Route: 048
     Dates: start: 20170901
  2. IBRANCE [Suspect]
     Active Substance: PALBOCICLIB
     Dosage: 125 MG, CYCLIC (ONCE A DAY FOR 21 DAYS) (DAYS 1-21)
     Route: 048
     Dates: start: 20171011

REACTIONS (16)
  - Gastric disorder [Unknown]
  - Nausea [Unknown]
  - Stomatitis [Not Recovered/Not Resolved]
  - White blood cell count decreased [Unknown]
  - Dizziness [Unknown]
  - Fatigue [Unknown]
  - Cough [Not Recovered/Not Resolved]
  - Alopecia [Unknown]
  - Oropharyngeal pain [Not Recovered/Not Resolved]
  - Diarrhoea [Not Recovered/Not Resolved]
  - Red blood cell count decreased [Unknown]
  - Burning sensation [Unknown]
  - Epistaxis [Unknown]
  - Blindness [Unknown]
  - Vision blurred [Not Recovered/Not Resolved]
  - Dry eye [Unknown]

NARRATIVE: CASE EVENT DATE: 2017
